FAERS Safety Report 4945237-8 (Version None)
Quarter: 2006Q1

REPORT INFORMATION
  Report Type: 
  Country: None (occurrence: None)
  Receive Date: 20060118
  Receipt Date: 20041122
  Transmission Date: 20060701
  Serious: Yes (Other)
  Sender: FDA-Public Use
  Company Number: US-JNJFOC-20040908616

PATIENT
  Age: 46 Year
  Sex: Female
  Weight: 89.8122 kg

DRUGS (1)
  1. DOXIL [Suspect]
     Indication: OVARIAN CANCER
     Dosage: 80 MG, X2 CYCLES
     Dates: start: 20040730, end: 20040827

REACTIONS (3)
  - PALMAR-PLANTAR ERYTHRODYSAESTHESIA SYNDROME [None]
  - RASH [None]
  - SKIN DISCOLOURATION [None]
